FAERS Safety Report 12443545 (Version 1)
Quarter: 2016Q2

REPORT INFORMATION
  Report Type: Spontaneous
  Country: US (occurrence: US)
  Receive Date: 20160607
  Receipt Date: 20160607
  Transmission Date: 20160815
  Serious: No
  Sender: FDA-Public Use
  Company Number: US-BAYER-2016-101282

PATIENT
  Age: 73 Year
  Sex: Female
  Weight: 51.7 kg

DRUGS (15)
  1. AMLODIPINE BESILATE [Concomitant]
     Active Substance: AMLODIPINE BESYLATE
  2. CALCIUM [Concomitant]
     Active Substance: CALCIUM
  3. SYNTHROID [Concomitant]
     Active Substance: LEVOTHYROXINE SODIUM
  4. MIRALAX [Suspect]
     Active Substance: POLYETHYLENE GLYCOL 3350
     Indication: CONSTIPATION
     Dosage: UNK UNK, QD
     Route: 048
     Dates: start: 2011
  5. INDAPAMIDE. [Concomitant]
     Active Substance: INDAPAMIDE
  6. BISACODYL. [Concomitant]
     Active Substance: BISACODYL
  7. MIRALAX [Suspect]
     Active Substance: POLYETHYLENE GLYCOL 3350
     Indication: COLONOSCOPY
  8. MILK OF MAGNESIA CHERRY [Suspect]
     Active Substance: MAGNESIUM HYDROXIDE
     Indication: CONSTIPATION
     Dosage: UNK, QD
     Route: 048
  9. VITAMIN D [Concomitant]
     Active Substance: CHOLECALCIFEROL
  10. COQ10 [Concomitant]
     Active Substance: UBIDECARENONE
  11. ATORVASTATIN [Concomitant]
     Active Substance: ATORVASTATIN
  12. PROPANOLOL [Concomitant]
     Active Substance: PROPRANOLOL HYDROCHLORIDE
  13. ZETIA [Concomitant]
     Active Substance: EZETIMIBE
  14. MILK OF MAGNESIA CHERRY [Suspect]
     Active Substance: MAGNESIUM HYDROXIDE
     Indication: COLONOSCOPY
  15. BAYER EXTRA STRENGTH ASPIRIN [Concomitant]
     Active Substance: ASPIRIN

REACTIONS (5)
  - Product use issue [None]
  - Drug prescribing error [None]
  - Product use issue [None]
  - Drug prescribing error [None]
  - Product use issue [None]

NARRATIVE: CASE EVENT DATE: 2011
